FAERS Safety Report 6160514-3 (Version None)
Quarter: 2009Q2

REPORT INFORMATION
  Report Type: 
  Country: None (occurrence: None)
  Receive Date: 20090415
  Receipt Date: 20090415
  Transmission Date: 20091009
  Serious: Yes (Hospitalization, Disabling)
  Sender: FDA-Public Use
  Company Number: None

PATIENT
  Age: 25 Year
  Sex: Female
  Weight: 47 kg

DRUGS (2)
  1. COLISTIN SULFATE [Suspect]
     Indication: CYSTIC FIBROSIS LUNG
     Dosage: 150 MG Q12 HOURS IV BOLUS
     Route: 040
     Dates: start: 20090331, end: 20090407
  2. TRIMETHOPRIM-SULFAMETHOXAZOLE [Suspect]
     Indication: CONDITION AGGRAVATED
     Dosage: 1 TABLET BID PO
     Route: 048
     Dates: start: 20090331, end: 20090406

REACTIONS (3)
  - BLOOD CREATININE INCREASED [None]
  - PARAESTHESIA [None]
  - PARAESTHESIA ORAL [None]
